FAERS Safety Report 8574247-7 (Version None)
Quarter: 2012Q3

REPORT INFORMATION
  Report Type: 
  Country: None (occurrence: None)
  Receive Date: 20120806
  Receipt Date: 20120801
  Transmission Date: 20120928
  Serious: Yes (Hospitalization, Other)
  Sender: FDA-Public Use
  Company Number: US-009507513-2010SP004278

PATIENT

DRUGS (4)
  1. NUVARING [Suspect]
     Indication: DYSFUNCTIONAL UTERINE BLEEDING
     Dates: start: 20071228, end: 20080117
  2. NUVARING [Suspect]
     Indication: CONTRACEPTION
  3. HORMONAL CONTRACEPTIVES (UNSPECIFIED) [Concomitant]
     Indication: PRODUCT USED FOR UNKNOWN INDICATION
     Dates: start: 20071228
  4. NONSTEROIDAL ANTI-INFLAMMATORY DRUG (UNSPECIFIED) [Concomitant]
     Indication: PRODUCT USED FOR UNKNOWN INDICATION
     Dosage: UNK UNK, PRN

REACTIONS (8)
  - CERVICAL DYSPLASIA [None]
  - DIARRHOEA [None]
  - OFF LABEL USE [None]
  - PULMONARY EMBOLISM [None]
  - NAUSEA [None]
  - VOMITING [None]
  - CHLAMYDIA TEST POSITIVE [None]
  - MUSCLE SPASMS [None]
